FAERS Safety Report 14689255 (Version 1)
Quarter: 2018Q1

REPORT INFORMATION
  Report Type: Spontaneous
  Country: DE (occurrence: DE)
  Receive Date: 20180328
  Receipt Date: 20180328
  Transmission Date: 20180509
  Serious: Yes (Hospitalization)
  Sender: FDA-Public Use
  Company Number: DE-SA-2018SA028162

PATIENT
  Age: 53 Year
  Sex: Female

DRUGS (15)
  1. AUBAGIO [Suspect]
     Active Substance: TERIFLUNOMIDE
     Indication: MULTIPLE SCLEROSIS
     Route: 048
     Dates: start: 201507, end: 201801
  2. TRAMADOL. [Concomitant]
     Active Substance: TRAMADOL
     Route: 065
  3. FAMPYRA [Concomitant]
     Active Substance: DALFAMPRIDINE
     Route: 065
  4. PREDNISOLON [Concomitant]
     Active Substance: PREDNISOLONE
     Dosage: 30 MG 1 - 0 - 0  DAY 4
     Route: 065
  5. CLEXANE [Concomitant]
     Active Substance: ENOXAPARIN SODIUM
     Dosage: 0 - 0 - 1
     Route: 065
  6. PANTOZOL [Concomitant]
     Active Substance: PANTOPRAZOLE SODIUM
     Dosage: 1 - 0 - 0
     Route: 065
  7. SAB SIMPLEX [Concomitant]
     Dosage: 10 ML 1 - 1 - 1 - 1
     Route: 065
  8. MAGNESIUM [Concomitant]
     Active Substance: MAGNESIUM
     Dosage: 1 - 0 - 0
     Route: 065
  9. PREGABALIN. [Concomitant]
     Active Substance: PREGABALIN
     Route: 065
  10. NOVALGIN (METAMIZOLE SODIUM) [Concomitant]
     Active Substance: METAMIZOLE SODIUM
     Dosage: 1 - 1 - 1
     Route: 065
  11. MOVICOL [Concomitant]
     Active Substance: POLYETHYLENE GLYCOL 3350\POTASSIUM CHLORIDE\SODIUM BICARBONATE\SODIUM CHLORIDE
     Dosage: 1 - 0 - 0
     Route: 065
  12. BIFITERAL [Concomitant]
     Active Substance: LACTULOSE
     Dosage: 1 - 1 - 1
     Route: 065
  13. OXYCODONE [Concomitant]
     Active Substance: OXYCODONE
     Route: 065
  14. HYDROMORPHON [Concomitant]
     Active Substance: HYDROMORPHONE
     Dosage: 1 - 0 - 1
     Route: 065
  15. SATIVEX [Concomitant]
     Active Substance: NABIXIMOLS
     Dosage: 2.7 + 2.5 MG CURRENT 1 - 0 - 2 REQUEST TO REDUCE THE DOSAGE IN CASE OF INTOLERANCE?SPRAY
     Route: 065

REACTIONS (22)
  - Coma [Unknown]
  - Alanine aminotransferase increased [Unknown]
  - Pyrexia [Unknown]
  - Jaundice [Unknown]
  - Rash [Unknown]
  - Arthralgia [Unknown]
  - Splenomegaly [Unknown]
  - Arrhythmia [Unknown]
  - Vomiting [Unknown]
  - Hepatotoxicity [Unknown]
  - Abdominal pain [Unknown]
  - Malaise [Unknown]
  - Pruritus [Unknown]
  - Asthenia [Unknown]
  - Purpura [Unknown]
  - Dizziness [Unknown]
  - Hypotension [Unknown]
  - Asterixis [Unknown]
  - Ascites [Unknown]
  - Lymph node pain [Unknown]
  - International normalised ratio decreased [Unknown]
  - Hepatomegaly [Unknown]

NARRATIVE: CASE EVENT DATE: 201801
